FAERS Safety Report 8306041-6 (Version None)
Quarter: 2012Q2

REPORT INFORMATION
  Report Type: 
  Country: None (occurrence: None)
  Receive Date: 20120423
  Receipt Date: 20120410
  Transmission Date: 20120825
  Serious: Yes (Life-Threatening, Hospitalization)
  Sender: FDA-Public Use
  Company Number: CHPA2012US000892

PATIENT
  Sex: Male
  Weight: 87.982 kg

DRUGS (9)
  1. ZOCOR [Concomitant]
     Dosage: UNK
  2. MULTI-VITAMINS [Concomitant]
     Dosage: 1 DF, QD
     Route: 048
  3. LOVAZA [Concomitant]
     Dosage: 1000 MG, QD
     Route: 048
  4. SIMVASTATIN [Concomitant]
     Dosage: 20 MG, QD
     Route: 048
  5. EXCEDRIN (MIGRAINE) [Suspect]
     Indication: MIGRAINE
     Dosage: 2 DF, PRN
     Route: 048
     Dates: start: 20120101, end: 20120101
  6. MICARDIS [Concomitant]
     Dosage: 80 MG, QD
     Route: 048
  7. AMLODIPINE [Concomitant]
     Dosage: 5 MG, UNK
  8. EXCEDRIN (MIGRAINE) [Suspect]
     Dosage: 2 DF, PRN
     Route: 048
  9. TRIAMTERENE AND HYDROCHLOROTHIAZIDE [Concomitant]
     Dosage: 0.5 DF, QOD

REACTIONS (12)
  - SWOLLEN TONGUE [None]
  - CONJUNCTIVAL OEDEMA [None]
  - PHARYNGEAL OEDEMA [None]
  - SPEECH DISORDER [None]
  - ANGIOEDEMA [None]
  - SWELLING FACE [None]
  - FATIGUE [None]
  - DISCOMFORT [None]
  - CHOKING SENSATION [None]
  - GLOSSODYNIA [None]
  - DYSPHAGIA [None]
  - THROAT IRRITATION [None]
